FAERS Safety Report 8026128-5 (Version None)
Quarter: 2012Q1

REPORT INFORMATION
  Report Type: 
  Country: None (occurrence: None)
  Receive Date: 20120105
  Receipt Date: 20110627
  Transmission Date: 20120608
  Serious: No
  Sender: FDA-Public Use
  Company Number: US-ABBOTT-11P-163-0835069-00

PATIENT
  Sex: Female
  Weight: 54.026 kg

DRUGS (6)
  1. COMBIVENT [Concomitant]
     Indication: ASTHMA
     Dosage: 2 PUFFS TWICE DAILY AS NEEDED
     Dates: start: 20080101
  2. VALIUM [Concomitant]
     Indication: VERTIGO POSITIONAL
     Route: 048
     Dates: start: 20100101
  3. SYNTHROID [Suspect]
     Dosage: ALTERNATE 12.5MCG/ 25MCG EVERY OTHER DAY
     Route: 048
     Dates: start: 20110501
  4. SYNTHROID [Suspect]
     Indication: HYPOTHYROIDISM
     Route: 048
     Dates: start: 20110301, end: 20110501
  5. ALLEGRA [Concomitant]
     Indication: ALLERGIC SINUSITIS
     Dosage: ONCE DAILY AS NEEDED
     Route: 048
     Dates: start: 20110201
  6. VALIUM [Concomitant]
     Indication: STRESS

REACTIONS (1)
  - NERVOUSNESS [None]
